FAERS Safety Report 7067497-2 (Version None)
Quarter: 2010Q4

REPORT INFORMATION
  Report Type: 
  Country: None (occurrence: None)
  Receive Date: 20101028
  Receipt Date: 20101019
  Transmission Date: 20110411
  Serious: Yes (Life-Threatening, Other)
  Sender: FDA-Public Use
  Company Number: JP-JNJFOC-20100901231

PATIENT
  Sex: Male

DRUGS (14)
  1. CRAVIT [Suspect]
     Indication: URINARY TRACT INFECTION
     Route: 048
  2. CRAVIT [Suspect]
     Route: 048
  3. CRAVIT [Suspect]
     Indication: INFECTIVE SPONDYLITIS
     Route: 048
  4. CRAVIT [Suspect]
     Route: 048
  5. PENTCILLIN [Suspect]
     Indication: INFECTIVE SPONDYLITIS
     Dosage: DAILY DOSE- IF IT ACHES THAN 15 MG
     Route: 042
  6. CEFAMEZIN [Suspect]
     Indication: SPONDYLITIS
     Dosage: DAILY DOSE- IF IT ACHES THAN 15 MG
     Route: 042
  7. AMARYL [Suspect]
     Indication: DIABETES MELLITUS
     Route: 048
  8. FOIPAN [Concomitant]
     Indication: PRODUCT USED FOR UNKNOWN INDICATION
     Route: 048
  9. ALTAT [Concomitant]
     Indication: PRODUCT USED FOR UNKNOWN INDICATION
     Route: 048
  10. HERBAL NERVE TONIC LIQUID [Concomitant]
     Indication: PRODUCT USED FOR UNKNOWN INDICATION
     Route: 048
  11. URINORM [Concomitant]
     Indication: PRODUCT USED FOR UNKNOWN INDICATION
     Route: 048
  12. URALYT-U [Concomitant]
     Indication: PRODUCT USED FOR UNKNOWN INDICATION
     Route: 048
  13. VOLTAREN [Concomitant]
     Indication: PRODUCT USED FOR UNKNOWN INDICATION
     Dosage: DAILY DOSE- IF IT ACHES THAN 75 MG
     Route: 048
  14. TAKEPRON [Concomitant]
     Indication: PRODUCT USED FOR UNKNOWN INDICATION
     Dosage: DAILY DOSE- IF IT ACHES THAN 15 MG
     Route: 048

REACTIONS (5)
  - DEPRESSED LEVEL OF CONSCIOUSNESS [None]
  - DYSPNOEA [None]
  - HYPOGLYCAEMIC UNCONSCIOUSNESS [None]
  - OVERDOSE [None]
  - RESPIRATORY ARREST [None]
